FAERS Safety Report 5272477-3 (Version None)
Quarter: 2007Q1

REPORT INFORMATION
  Report Type: 
  Country: None (occurrence: None)
  Receive Date: 20070322
  Receipt Date: 20060406
  Transmission Date: 20070707
  Serious: No
  Sender: FDA-Public Use
  Company Number: US-BRISTOL-MYERS SQUIBB COMPANY-13071428

PATIENT
  Age: 27 Year
  Sex: Female
  Weight: 52 kg

DRUGS (2)
  1. KENALOG [Suspect]
     Indication: PHARYNGITIS
     Route: 030
     Dates: start: 20041026
  2. KENALOG [Suspect]
     Indication: UPPER RESPIRATORY TRACT INFECTION
     Route: 030
     Dates: start: 20041026

REACTIONS (3)
  - ARTHRALGIA [None]
  - INJECTION SITE ATROPHY [None]
  - NECROSIS [None]
